FAERS Safety Report 13454427 (Version 1)
Quarter: 2017Q2

REPORT INFORMATION
  Report Type: Spontaneous
  Country: US (occurrence: US)
  Receive Date: 20170418
  Receipt Date: 20170418
  Transmission Date: 20170830
  Serious: No
  Sender: FDA-Public Use
  Company Number: US-ALLERGAN-1704014US

PATIENT
  Sex: Female

DRUGS (2)
  1. ISTALOL [Concomitant]
     Active Substance: TIMOLOL MALEATE
     Indication: GLAUCOMA
     Dosage: 2 GTT, QAM
     Route: 047
  2. LUMIGAN [Suspect]
     Active Substance: BIMATOPROST
     Indication: GLAUCOMA
     Dosage: UNK, UNKNOWN
     Route: 047
     Dates: start: 201611

REACTIONS (3)
  - Malaise [Recovered/Resolved]
  - Drug dose omission [Unknown]
  - Viral upper respiratory tract infection [Recovered/Resolved]
